FAERS Safety Report 8235739 (Version 2)
Quarter: 2017Q4

REPORT INFORMATION
  Report Type: Report from Study
  Country: US (occurrence: US)
  Receive Date: 20111108
  Receipt Date: 20171218
  Transmission Date: 20180321
  Serious: Yes (Other)
  Sender: FDA-Public Use
  Company Number: US-ROCHE-1007340

PATIENT

DRUGS (6)
  1. RITUXIMAB. [Suspect]
     Active Substance: RITUXIMAB
     Indication: MANTLE CELL LYMPHOMA
     Dosage: DAY 1
     Route: 042
  2. VINCRISTINE [Suspect]
     Active Substance: VINCRISTINE
     Indication: MANTLE CELL LYMPHOMA
     Dosage: 1 TO 2 MG; DAY 3
     Route: 042
  3. BORTEZOMIB [Suspect]
     Active Substance: BORTEZOMIB
     Indication: MANTLE CELL LYMPHOMA
     Dosage: 1.3 TO 1.5 MG/M2; DAYS 1 AND 4
     Route: 042
  4. DOXORUBICIN [Suspect]
     Active Substance: DOXORUBICIN
     Indication: MANTLE CELL LYMPHOMA
     Dosage: DAYS 1-2 (TOTAL DOSE OVER 48 H EQUAL TO 50 MG/M2)
     Route: 042
  5. CYCLOPHOSPHAMIDE. [Suspect]
     Active Substance: CYCLOPHOSPHAMIDE
     Indication: MANTLE CELL LYMPHOMA
     Dosage: DAYS 1 TO 3
     Route: 042
  6. DEXAMETHASONE. [Suspect]
     Active Substance: DEXAMETHASONE
     Indication: MANTLE CELL LYMPHOMA
     Dosage: DAYS 1-4, 21 DAY CYCLE
     Route: 048

REACTIONS (21)
  - Neutropenia [Unknown]
  - Febrile neutropenia [Unknown]
  - Fatigue [Unknown]
  - Clostridium difficile colitis [Unknown]
  - Neuralgia [Unknown]
  - Haemoglobin [Unknown]
  - Pulmonary embolism [Unknown]
  - Hypogammaglobulinaemia [Unknown]
  - Hyperglycaemia [Unknown]
  - Hypophosphataemia [Unknown]
  - Pneumococcal sepsis [Unknown]
  - Thrombocytopenia [Unknown]
  - Mood altered [Unknown]
  - Peripheral sensory neuropathy [Unknown]
  - Bone marrow failure [Unknown]
  - Infection [Unknown]
  - Hyponatraemia [Unknown]
  - Dehydration [Unknown]
  - Neutropenic infection [Unknown]
  - Oesophagitis [Unknown]
  - Pain [Unknown]
